FAERS Safety Report 5030378-X (Version None)
Quarter: 2006Q2

REPORT INFORMATION
  Report Type: 
  Country: None (occurrence: None)
  Receive Date: 20060620
  Receipt Date: 20060608
  Transmission Date: 20061013
  Serious: Yes (Other)
  Sender: FDA-Public Use
  Company Number: US-ROCHE-451363

PATIENT
  Age: 57 Year
  Sex: Female
  Weight: 74.4 kg

DRUGS (3)
  1. PEGASYS [Suspect]
     Indication: HEPATITIS C
     Route: 058
     Dates: start: 20060210
  2. COPEGUS [Suspect]
     Indication: HEPATITIS C
     Dosage: TAKEN: 3 TABLETS QAM/ 2 TABLETS QPM.
     Route: 048
     Dates: start: 20060210
  3. VITAMIN B NOS [Concomitant]
     Route: 048

REACTIONS (6)
  - ALOPECIA [None]
  - BACK PAIN [None]
  - COUGH [None]
  - DIARRHOEA [None]
  - RED BLOOD CELL COUNT DECREASED [None]
  - RED BLOOD CELL MORPHOLOGY ABNORMAL [None]
